FAERS Safety Report 14506805 (Version 1)
Quarter: 2018Q1

REPORT INFORMATION
  Report Type: Spontaneous
  Country: US (occurrence: US)
  Receive Date: 20180207
  Receipt Date: 20180207
  Transmission Date: 20180509
  Serious: No
  Sender: FDA-Public Use
  Company Number: None

PATIENT
  Age: 3 Year
  Sex: Male
  Weight: 14.4 kg

DRUGS (1)
  1. OSELTAMIVIR PHOSPHATE. [Suspect]
     Active Substance: OSELTAMIVIR PHOSPHATE
     Indication: INFLUENZA
     Dosage: ?          QUANTITY:1 TEASPOON(S);?
     Route: 048
     Dates: start: 20180206, end: 20180207

REACTIONS (6)
  - Somnolence [None]
  - Insomnia [None]
  - Screaming [None]
  - Hyperhidrosis [None]
  - Feeling abnormal [None]
  - Aggression [None]

NARRATIVE: CASE EVENT DATE: 20180207
